FAERS Safety Report 6263005-4 (Version None)
Quarter: 2009Q3

REPORT INFORMATION
  Report Type: 
  Country: None (occurrence: None)
  Receive Date: 20090710
  Receipt Date: 20090708
  Transmission Date: 20100115
  Serious: Yes (Hospitalization)
  Sender: FDA-Public Use
  Company Number: US-BIOGENIDEC-2005BI009512

PATIENT
  Age: 50 Year
  Sex: Female

DRUGS (4)
  1. AVONEX [Suspect]
     Indication: MULTIPLE SCLEROSIS
     Route: 030
     Dates: start: 19970601
  2. AVONEX [Suspect]
     Route: 030
     Dates: start: 20010101, end: 20030101
  3. AVONEX [Suspect]
     Route: 030
     Dates: start: 20030101, end: 20030101
  4. AVONEX [Suspect]
     Route: 030
     Dates: start: 20030101, end: 20070901

REACTIONS (2)
  - HYDROCEPHALUS [None]
  - INFLUENZA LIKE ILLNESS [None]
